FAERS Safety Report 4509865-6 (Version None)
Quarter: 2004Q4

REPORT INFORMATION
  Report Type: 
  Country: None (occurrence: None)
  Receive Date: 20041119
  Receipt Date: 20041102
  Transmission Date: 20050328
  Serious: Yes (Hospitalization)
  Sender: FDA-Public Use
  Company Number: USA040773073

PATIENT
  Age: 66 Year
  Sex: Female
  Weight: 56 kg

DRUGS (11)
  1. FORTEO [Suspect]
     Indication: OSTEOPOROSIS
     Dosage: 20 UG DAY
     Dates: start: 20040501
  2. NEXIUM [Concomitant]
  3. OXYCONTIN [Concomitant]
  4. ZOLOFT [Concomitant]
  5. BEXTRA [Concomitant]
  6. CELEBREX [Concomitant]
  7. OXYCODONE AND ACETAMINOPHEN [Concomitant]
  8. CALCIUM WITH VITAMIN D [Concomitant]
  9. NEURONTIN (GABAPENTIN PFIZER) [Concomitant]
  10. PERCOCET [Concomitant]
  11. ZANAFLEX [Concomitant]

REACTIONS (13)
  - ABDOMINAL PAIN UPPER [None]
  - ASTHENIA [None]
  - CRYING [None]
  - DEPRESSION [None]
  - DIVERTICULITIS [None]
  - GASTRITIS [None]
  - HEADACHE [None]
  - HYPERCHLORHYDRIA [None]
  - INJECTION SITE HAEMORRHAGE [None]
  - INJECTION SITE PAIN [None]
  - PANCREATIC ENZYMES INCREASED [None]
  - PHARMACEUTICAL PRODUCT COMPLAINT [None]
  - WEIGHT DECREASED [None]
